FAERS Safety Report 20602239 (Version 1)
Quarter: 2022Q1

REPORT INFORMATION
  Report Type: Spontaneous
  Country: US (occurrence: None)
  Receive Date: 20220315
  Receipt Date: 20220315
  Transmission Date: 20220424
  Serious: Yes (Life-Threatening, Other)
  Sender: FDA-Public Use
  Company Number: None

PATIENT
  Age: 60 Year
  Sex: Female
  Weight: 76.5 kg

DRUGS (6)
  1. MONTELUKAST SODIUM [Suspect]
     Active Substance: MONTELUKAST SODIUM
     Indication: Multiple allergies
     Dosage: 1 TABLET  ?1X IN EVENING ?
     Route: 048
     Dates: start: 20220218, end: 20220310
  2. CETIRIZINE HYDROCHLORIDE [Concomitant]
     Active Substance: CETIRIZINE HYDROCHLORIDE
  3. VITAFUSION WOMEN^S DAILY VITAMIN [Concomitant]
  4. VITAFUSION BIOTIN [Concomitant]
  5. MELATONIN [Concomitant]
     Active Substance: MELATONIN
  6. NYTROL [Concomitant]

REACTIONS (2)
  - Anaphylactic reaction [None]
  - Product substitution issue [None]

NARRATIVE: CASE EVENT DATE: 20220219
